FAERS Safety Report 22264671 (Version 1)
Quarter: 2023Q2

REPORT INFORMATION
  Report Type: Spontaneous
  Country: FR (occurrence: FR)
  Receive Date: 20230428
  Receipt Date: 20230428
  Transmission Date: 20230721
  Serious: Yes (Hospitalization, Other)
  Sender: FDA-Public Use
  Company Number: FR-MYLANLABS-2023M1044639

PATIENT
  Age: 90 Year
  Sex: Male

DRUGS (10)
  1. LENALIDOMIDE [Suspect]
     Active Substance: LENALIDOMIDE
     Indication: Plasma cell myeloma
     Dosage: UN (LENALIDOMIDE AND DEXAMETHASONE (RD) REGIMEN)
     Route: 065
  2. DEXAMETHASONE [Suspect]
     Active Substance: DEXAMETHASONE
     Indication: Plasma cell myeloma
     Dosage: UNK (LENALIDOMIDE AND DEXAMETHASONE (RD) REGIMEN)
     Route: 065
  3. DEXAMETHASONE [Suspect]
     Active Substance: DEXAMETHASONE
     Dosage: UNK (POMALIDOMIDE, CYCLOPHOSPHAMIDE AND DEXAMETHASONE (PCD) REGIMEN)
     Route: 065
  4. PREDNISOLONE [Suspect]
     Active Substance: PREDNISOLONE
     Indication: Plasma cell myeloma
     Dosage: UNK, CYCLE {MELPHALAN, PREDNISOLONE AND BORTEZOMIB (MPV) REGIMEN}
     Route: 065
  5. POMALIDOMIDE [Suspect]
     Active Substance: POMALIDOMIDE
     Indication: Plasma cell myeloma
     Dosage: UNK (POMALIDOMIDE, CYCLOPHOSPHAMIDE AND DEXAMETHASONE (PCD) REGIMEN)
     Route: 065
  6. CYCLOPHOSPHAMIDE [Suspect]
     Active Substance: CYCLOPHOSPHAMIDE
     Indication: Plasma cell myeloma
     Dosage: UNK (POMALIDOMIDE, CYCLOPHOSPHAMIDE AND DEXAMETHASONE (PCD) REGIMEN)
     Route: 065
  7. MELPHALAN [Concomitant]
     Active Substance: MELPHALAN
     Indication: Plasma cell myeloma
     Dosage: UNK UNK, CYCLE (MELPHALAN, PREDNISOLONE AND BORTEZOMIB (MPV) REGIMEN)
     Route: 065
  8. BORTEZOMIB [Concomitant]
     Active Substance: BORTEZOMIB
     Indication: Plasma cell myeloma
     Dosage: UNK UNK, CYCLE (MELPHALAN, PREDNISOLONE AND BORTEZOMIB (MPV) REGIMEN)
     Route: 065
  9. DARATUMUMAB [Concomitant]
     Active Substance: DARATUMUMAB
     Indication: Plasma cell myeloma
     Dosage: UNK (A REGIMEN OF DARATUMUMAB, BENDAMUSTINE AND DEXAMETHASONE)
     Route: 065
  10. BENDAMUSTINE [Concomitant]
     Active Substance: BENDAMUSTINE
     Indication: Plasma cell myeloma
     Dosage: UNK (A  REGIMEN OF DARATUMUMAB, BENDAMUSTINE AND DEXAMETHASONE)
     Route: 065

REACTIONS (3)
  - Actinomycosis [Recovered/Resolved]
  - Osteolysis [Unknown]
  - Drug ineffective [Unknown]
